APPROVED DRUG PRODUCT: PHENTERMINE HYDROCHLORIDE
Active Ingredient: PHENTERMINE HYDROCHLORIDE
Strength: 30MG
Dosage Form/Route: TABLET, ORALLY DISINTEGRATING;ORAL
Application: A204663 | Product #002
Applicant: ZYDUS PHARMACEUTICALS USA INC
Approved: Jun 28, 2017 | RLD: No | RS: No | Type: RX